FAERS Safety Report 8267153-9 (Version None)
Quarter: 2012Q2

REPORT INFORMATION
  Report Type: 
  Country: None (occurrence: None)
  Receive Date: 20120409
  Receipt Date: 20120329
  Transmission Date: 20120825
  Serious: Yes (Other)
  Sender: FDA-Public Use
  Company Number: CA-JNJFOC-20120315232

PATIENT
  Weight: 52 kg

DRUGS (10)
  1. METHOTREXATE [Concomitant]
     Route: 065
  2. LOMOTIL [Concomitant]
     Route: 065
  3. ATIVAN [Concomitant]
     Route: 065
  4. COLESTIPOL HYDROCHLORIDE [Concomitant]
     Route: 065
  5. VITAMIN B-12 [Concomitant]
     Route: 065
  6. REMICADE [Suspect]
     Indication: CROHN'S DISEASE
     Route: 042
     Dates: start: 20080101
  7. CLONAZEPAM [Concomitant]
     Route: 065
  8. HABITROL [Concomitant]
     Route: 065
  9. FOLIC ACID [Concomitant]
     Route: 065
  10. RISEDRONATE SODIUM [Concomitant]
     Route: 065

REACTIONS (2)
  - BUNION [None]
  - ARTHRITIS [None]
